FAERS Safety Report 7347877-8 (Version None)
Quarter: 2011Q1

REPORT INFORMATION
  Report Type: 
  Country: None (occurrence: None)
  Receive Date: 20110302
  Receipt Date: 20110222
  Transmission Date: 20110831
  Serious: Yes (Other)
  Sender: FDA-Public Use
  Company Number: CANAB-11-0136

PATIENT
  Age: 73 Year
  Sex: Female
  Weight: 56 kg

DRUGS (3)
  1. PAMIDRONATE DISODIUM [Concomitant]
  2. ABRAXANE [Suspect]
     Indication: BREAST CANCER METASTATIC
     Dosage: (160 MG)
     Dates: start: 20101112
  3. BEVACIZUMAB (BEVACIZUMAB) [Concomitant]

REACTIONS (5)
  - ONYCHOLYSIS [None]
  - NAIL BED DISORDER [None]
  - INJECTION SITE PAIN [None]
  - CONTUSION [None]
  - SKIN REACTION [None]
